FAERS Safety Report 8377134-2 (Version None)
Quarter: 2012Q2

REPORT INFORMATION
  Report Type: 
  Country: None (occurrence: None)
  Receive Date: 20120522
  Receipt Date: 20120516
  Transmission Date: 20120825
  Serious: Yes (Life-Threatening, Hospitalization, Other)
  Sender: FDA-Public Use
  Company Number: FR-ABBOTT-12P-056-0937212-00

PATIENT
  Sex: Male

DRUGS (8)
  1. RISPERDAL [Suspect]
     Indication: PRODUCT USED FOR UNKNOWN INDICATION
     Route: 048
     Dates: end: 20110201
  2. REYATAZ [Concomitant]
     Indication: HIV INFECTION
     Route: 048
  3. MINIRINMELT [Concomitant]
     Indication: PRODUCT USED FOR UNKNOWN INDICATION
  4. DIAZEPAM [Concomitant]
     Indication: PRODUCT USED FOR UNKNOWN INDICATION
     Route: 048
  5. RITONAVIR [Interacting]
     Indication: HIV INFECTION
     Route: 048
     Dates: end: 20120201
  6. TRUVADA [Concomitant]
     Indication: HIV INFECTION
     Route: 048
  7. TRIMEPRAZINE TARTRATE [Concomitant]
     Indication: PRODUCT USED FOR UNKNOWN INDICATION
     Dosage: 60 DROPS IN THE AFTERNOON
  8. KETEK [Interacting]
     Indication: LUNG DISORDER
     Route: 048
     Dates: start: 20110124, end: 20110201

REACTIONS (8)
  - OEDEMA PERIPHERAL [None]
  - DRUG INTERACTION [None]
  - APRAXIA [None]
  - HAPTOGLOBIN DECREASED [None]
  - ASCITES [None]
  - PANCYTOPENIA [None]
  - JAUNDICE [None]
  - LUNG DISORDER [None]
